FAERS Safety Report 16549028 (Version 5)
Quarter: 2020Q1

REPORT INFORMATION
  Report Type: Spontaneous
  Country: US (occurrence: US)
  Receive Date: 20190709
  Receipt Date: 20200314
  Transmission Date: 20200409
  Serious: Yes (Hospitalization)
  Sender: FDA-Public Use
  Company Number: US-ACTELION-A-NJ2019-189202

PATIENT
  Age: 14 Year
  Sex: Male
  Weight: 36.28 kg

DRUGS (4)
  1. VELETRI [Suspect]
     Active Substance: EPOPROSTENOL
     Indication: PULMONARY HYPERTENSION
     Dosage: 134 NG/KG, PER MIN
     Route: 042
  2. SILDENAFIL. [Concomitant]
     Active Substance: SILDENAFIL
  3. VELETRI [Suspect]
     Active Substance: EPOPROSTENOL
     Dosage: 128 NG/KG, PER MIN
     Route: 042
  4. LETAIRIS [Concomitant]
     Active Substance: AMBRISENTAN

REACTIONS (7)
  - Psoriasis [Unknown]
  - Diarrhoea [Unknown]
  - Device alarm issue [Unknown]
  - Jugular vein distension [Unknown]
  - Hospitalisation [Unknown]
  - Seizure [Unknown]
  - Device issue [Unknown]

NARRATIVE: CASE EVENT DATE: 20190405
